FAERS Safety Report 9207324 (Version 4)
Quarter: 2014Q2

REPORT INFORMATION
  Report Type: Spontaneous
  Country: JP (occurrence: JP)
  Receive Date: 20130403
  Receipt Date: 20140408
  Transmission Date: 20141212
  Serious: Yes (Hospitalization, Other)
  Sender: FDA-Public Use
  Company Number: JP-AMGEN-JPNSP2013022430

PATIENT
  Age: 68 Year
  Sex: Female
  Weight: 58 kg

DRUGS (7)
  1. ENBREL [Suspect]
     Indication: RHEUMATOID ARTHRITIS
     Dosage: 50 MG, WEEKLY
     Route: 058
     Dates: start: 20121116, end: 20130315
  2. RHEUMATREX                         /00113802/ [Suspect]
     Indication: RHEUMATOID ARTHRITIS
     Dosage: 4 MG, WEEKLY
     Route: 048
     Dates: start: 1992
  3. RHEUMATREX                         /00113802/ [Suspect]
     Dosage: 10 MG, WEEKLY
     Route: 048
     Dates: start: 20120604
  4. RHEUMATREX                         /00113802/ [Suspect]
     Dosage: 4 DF, WEEKLY
     Route: 048
     Dates: start: 20120914
  5. RHEUMATREX                         /00113802/ [Suspect]
     Dosage: 8 MG, WEEKLY
     Route: 048
     Dates: start: 20121116, end: 20130315
  6. ISCOTIN                            /00030201/ [Concomitant]
     Indication: PULMONARY TUBERCULOSIS
     Dosage: 300 MG, 1X/DAY
     Dates: start: 20121012
  7. FOLIAMIN [Concomitant]
     Indication: PROPHYLAXIS
     Dosage: 5 MG, WEEKLY
     Dates: start: 20121116, end: 20130315

REACTIONS (8)
  - Joint destruction [Recovered/Resolved]
  - Joint swelling [Recovered/Resolved]
  - Arthralgia [Recovered/Resolved]
  - Cough [Unknown]
  - Hepatic function abnormal [Recovering/Resolving]
  - Interstitial lung disease [Recovered/Resolved]
  - Alanine aminotransferase increased [Recovering/Resolving]
  - Aspartate aminotransferase increased [Recovering/Resolving]
